FAERS Safety Report 10236301 (Version 1)
Quarter: 2014Q2

REPORT INFORMATION
  Report Type: Spontaneous
  Country: US (occurrence: None)
  Receive Date: 20140612
  Receipt Date: 20140612
  Transmission Date: 20141212
  Serious: Yes (Other)
  Sender: FDA-Public Use
  Company Number: None

PATIENT
  Age: 64 Year
  Sex: Male
  Weight: 103 kg

DRUGS (1)
  1. HEPARIN 30,000UNITS/30ML APP [Suspect]
     Indication: CARDIOPULMONARY BYPASS
     Dates: start: 20140611, end: 20140611

REACTIONS (2)
  - Drug effect incomplete [None]
  - Product quality issue [None]
